FAERS Safety Report 16004074 (Version 2)
Quarter: 2019Q1

REPORT INFORMATION
  Report Type: Other
  Country: IT (occurrence: IT)
  Receive Date: 20190225
  Receipt Date: 20190225
  Transmission Date: 20190418
  Serious: Yes (Hospitalization, Other)
  Sender: FDA-Public Use
  Company Number: IT-ACCORD-103930

PATIENT
  Age: 92 Year
  Sex: Male

DRUGS (9)
  1. SERTRALINE [Suspect]
     Active Substance: SERTRALINE HYDROCHLORIDE
     Indication: PRODUCT USED FOR UNKNOWN INDICATION
     Route: 048
     Dates: start: 20180101, end: 20180210
  2. BRIMONIDINE [Concomitant]
     Active Substance: BRIMONIDINE TARTRATE
     Route: 047
  3. COSOPT [Concomitant]
     Active Substance: DORZOLAMIDE HYDROCHLORIDE\TIMOLOL MALEATE
     Dosage: STRENGTH 20 MG/ML + 5 MG/ML
  4. PANTORC [Concomitant]
     Active Substance: PANTOPRAZOLE SODIUM
     Dosage: STRENGTH 20 MG
  5. ARIXTRA [Interacting]
     Active Substance: FONDAPARINUX SODIUM
     Indication: PRODUCT USED FOR UNKNOWN INDICATION
     Dosage: STRENGTH 10 MG/0.8 ML
     Route: 058
     Dates: start: 20180101, end: 20180210
  6. XALATAN [Concomitant]
     Active Substance: LATANOPROST
     Dosage: STRENGTH 50 MICROGRAMS / ML
  7. ALLOPURINOL. [Concomitant]
     Active Substance: ALLOPURINOL
  8. XATRAL [Concomitant]
     Active Substance: ALFUZOSIN
  9. COTAREG [Concomitant]
     Active Substance: HYDROCHLOROTHIAZIDE\VALSARTAN
     Dosage: STRENGTH 80 MG/12,5 MG

REACTIONS (6)
  - Drug interaction [Unknown]
  - Hyponatraemia [Unknown]
  - Haematuria [Unknown]
  - Headache [Unknown]
  - Loss of consciousness [Unknown]
  - Confusional state [Unknown]

NARRATIVE: CASE EVENT DATE: 20180210
